FAERS Safety Report 19411557 (Version 5)
Quarter: 2021Q3

REPORT INFORMATION
  Report Type: Spontaneous
  Country: JP (occurrence: JP)
  Receive Date: 20210614
  Receipt Date: 20210811
  Transmission Date: 20211014
  Serious: Yes (Other)
  Sender: FDA-Public Use
  Company Number: JP-GLAXOSMITHKLINE-JP2021JPN123888

PATIENT
  Age: 84 Year
  Sex: Male

DRUGS (15)
  1. FUROSEMIDE TABLETS [Concomitant]
     Active Substance: FUROSEMIDE
     Indication: OEDEMA
  2. LOTRIGA GRANULAR CAPSULE [Concomitant]
     Indication: HYPERLIPIDAEMIA
     Dosage: UNK
     Route: 048
     Dates: start: 20161129
  3. SILODOSIN OD [Concomitant]
     Indication: DYSURIA
     Dosage: 4 MG
  4. THEOPHYLLINE [Concomitant]
     Active Substance: THEOPHYLLINE ANHYDROUS
     Indication: BRONCHIAL OBSTRUCTION
     Dosage: 200 MG
     Route: 048
     Dates: start: 20161227, end: 20210406
  5. PIOGLITAZONE HYDROCHLORIDE. [Concomitant]
     Active Substance: PIOGLITAZONE HYDROCHLORIDE
     Indication: DIABETES MELLITUS
     Dosage: 15 MG
     Route: 048
     Dates: start: 20181106
  6. TRELEGY ELLIPTA [Suspect]
     Active Substance: FLUTICASONE FUROATE\UMECLIDINIUM BROMIDE\VILANTEROL TRIFENATATE
     Indication: CHRONIC OBSTRUCTIVE PULMONARY DISEASE
     Dosage: 100 ?G, QD, 1 INHALATION PER DOSE IN THE MORNING
     Route: 055
     Dates: start: 20190604, end: 2021
  7. RELVAR ELLIPTA [Concomitant]
     Active Substance: FLUTICASONE FUROATE\VILANTEROL TRIFENATATE
     Indication: CHRONIC OBSTRUCTIVE PULMONARY DISEASE
     Dosage: UNK
  8. FAMOTIDINE D TABLETS [Concomitant]
     Indication: GASTRIC DISORDER
     Dosage: 20 MG
     Route: 048
     Dates: start: 20161227, end: 20210406
  9. AMLODIPINE [Concomitant]
     Active Substance: AMLODIPINE BESYLATE
     Indication: HYPERTENSION
     Dosage: 5 MG
     Route: 048
     Dates: start: 20161129
  10. MIKELUNA COMBINATION OPHTHALMIC SOLUTION [Concomitant]
     Active Substance: CARTEOLOL HYDROCHLORIDE\LATANOPROST
     Indication: GLAUCOMA
     Dosage: UNK
     Route: 061
     Dates: start: 20180130
  11. ONGLYZA [Concomitant]
     Active Substance: SAXAGLIPTIN HYDROCHLORIDE
     Indication: DIABETES MELLITUS
     Dosage: 2.5 MG
     Route: 048
     Dates: start: 20190604
  12. LATANOPROST OPHTHALMIC SOLUTION [Concomitant]
     Active Substance: LATANOPROST
     Indication: GLAUCOMA
     Dosage: UNK
     Route: 061
     Dates: start: 20180501
  13. CLEANAL TABLETS [Concomitant]
     Active Substance: FUDOSTEINE
     Indication: PRODUCTIVE COUGH
     Dosage: 800 MG
     Route: 048
     Dates: start: 20180501, end: 20210406
  14. BROTIZOLAM [Concomitant]
     Active Substance: BROTIZOLAM
     Indication: INSOMNIA
     Dosage: 0.125 MG
     Route: 048
     Dates: start: 20210501
  15. BENZBROMARONE [Concomitant]
     Active Substance: BENZBROMARONE
     Indication: HYPERURICAEMIA
     Dosage: 50 MG
     Route: 048
     Dates: start: 20161129

REACTIONS (2)
  - Urinary retention [Recovered/Resolved]
  - Dysuria [Unknown]

NARRATIVE: CASE EVENT DATE: 20210608
